FAERS Safety Report 26157713 (Version 2)
Quarter: 2025Q4

REPORT INFORMATION
  Report Type: Report from Study
  Country: MX (occurrence: None)
  Receive Date: 20251215
  Receipt Date: 20251231
  Transmission Date: 20260118
  Serious: Yes (Death, Other)
  Sender: UCB
  Company Number: MX-UCBSA-2025078774

PATIENT
  Age: 16 Year
  Weight: 23 kg

DRUGS (32)
  1. FENFLURAMINE HYDROCHLORIDE [Suspect]
     Active Substance: FENFLURAMINE HYDROCHLORIDE
     Indication: Epilepsy
     Dosage: 8 MILLIGRAM, 2X/DAY (BID)
  2. FENFLURAMINE HYDROCHLORIDE [Suspect]
     Active Substance: FENFLURAMINE HYDROCHLORIDE
     Dosage: 2.2 MG/ML
  3. LEVETIRACETAM [Concomitant]
     Active Substance: LEVETIRACETAM
     Indication: Epilepsy
     Dosage: 500 MILLIGRAM, 2X/DAY (BID)
  4. TOPIRAMATE [Concomitant]
     Active Substance: TOPIRAMATE
     Indication: Epilepsy
     Dosage: 100 MILLIGRAM, 2X/DAY (BID)
  5. CLONAZEPAM [Concomitant]
     Active Substance: CLONAZEPAM
     Indication: Epilepsy
     Dosage: 2 MILLIGRAM, 4X/DAY (QID)
  6. POLYETHYLENE GLYCOL [Concomitant]
     Active Substance: POLYETHYLENE GLYCOL
     Indication: Constipation
     Dosage: 17 GRAM, 2X/DAY (BID)
  7. FUROSEMIDE [Concomitant]
     Active Substance: FUROSEMIDE
     Indication: Polyuria
     Dosage: 11.5 MILLIGRAM, 3X/DAY (TID)
  8. Atropine 1% ophthalmic sol [Concomitant]
     Indication: Salivary hypersecretion
     Dosage: ATROPINE 1% OPHTHALMIC SOL. 2 DROPS
  9. ZINC GLUCONATE [Concomitant]
     Active Substance: ZINC GLUCONATE
     Indication: Malnutrition
     Dosage: 15 MILLIGRAM, ONCE DAILY (QD)
  10. Vitamins A, C and D [Concomitant]
     Indication: Malnutrition
     Dosage: 1 MILLILITER, ONCE DAILY (QD)
  11. Bedoyecta Kids [Concomitant]
     Indication: Malnutrition
     Dosage: 1 DOSAGE FORM, ONCE DAILY (QD)
  12. FLUTICASONE [Concomitant]
     Active Substance: FLUTICASONE
     Indication: Bronchial hyperreactivity
     Dosage: 250 MICROGRAM, 2X/DAY (BID)
  13. TRIMEBUTINE [Concomitant]
     Active Substance: TRIMEBUTINE
     Indication: Diarrhoea
     Dosage: UNK
  14. TRIMEBUTINE [Concomitant]
     Active Substance: TRIMEBUTINE
     Indication: Abdominal pain
  15. NEOMYCIN [Concomitant]
     Active Substance: NEOMYCIN
     Indication: Diarrhoea
     Dosage: UNK
  16. NEOMYCIN [Concomitant]
     Active Substance: NEOMYCIN
     Indication: Abdominal pain
  17. PECTIN [Concomitant]
     Active Substance: PECTIN
     Indication: Abdominal pain
  18. PECTIN [Concomitant]
     Active Substance: PECTIN
     Indication: Diarrhoea
  19. KAOLIN [Concomitant]
     Active Substance: KAOLIN
     Indication: Abdominal pain
     Dosage: UNK
  20. KAOLIN [Concomitant]
     Active Substance: KAOLIN
     Indication: Diarrhoea
  21. Hartmann solution [Concomitant]
     Indication: Hypotension
     Dosage: 10 ML/KG
  22. CEFEPIME [Concomitant]
     Active Substance: CEFEPIME HYDROCHLORIDE
     Indication: Pyrexia
     Dosage: 150 MG/KG/DAY
  23. LEVOFLOXACIN [Concomitant]
     Active Substance: LEVOFLOXACIN
     Indication: Pyrexia
     Dosage: 20 MG/KG/DAY
  24. CIPROFLOXACIN [Concomitant]
     Active Substance: CIPROFLOXACIN
     Dosage: 30 MG/KG/DAY
  25. CEFTAZIDIME [Concomitant]
     Active Substance: CEFTAZIDIME
     Indication: Pseudomonas infection
  26. SULFAMETHOXAZOLE\TRIMETHOPRIM [Concomitant]
     Active Substance: SULFAMETHOXAZOLE\TRIMETHOPRIM
     Indication: Pseudomonas infection
     Dosage: UNK
  27. DEXAMETHASONE [Concomitant]
     Active Substance: DEXAMETHASONE
     Indication: Haemorrhage
  28. MIDAZOLAM [Concomitant]
     Active Substance: MIDAZOLAM
     Indication: Analgesic therapy
     Dosage: UPTO 6 ML/HOUR
  29. MIDAZOLAM [Concomitant]
     Active Substance: MIDAZOLAM
     Indication: Status epilepticus
  30. BUPRENORPHINE [Concomitant]
     Active Substance: BUPRENORPHINE
     Indication: Analgesic therapy
     Dosage: UNK
  31. LIDOCAINE [Concomitant]
     Active Substance: LIDOCAINE
     Indication: Analgesic therapy
  32. dexmetomidine [Concomitant]
     Indication: Agitation
     Dosage: UNK

REACTIONS (13)
  - Cardiac arrest [Fatal]
  - Lennox-Gastaut syndrome [Fatal]
  - Tracheobronchitis [Fatal]
  - Bronchitis [Fatal]
  - Ischaemic stroke [Unknown]
  - Seizure [Unknown]
  - Atelectasis [Unknown]
  - Pleural effusion [Unknown]
  - Oxygen saturation decreased [Unknown]
  - Pyrexia [Unknown]
  - Coagulation time prolonged [Unknown]
  - Pulse abnormal [Unknown]
  - Poor venous access [Unknown]
